FAERS Safety Report 9947942 (Version 1)
Quarter: 2014Q1

REPORT INFORMATION
  Report Type: Report from Study
  Country: US (occurrence: US)
  Receive Date: 20140303
  Receipt Date: 20140303
  Transmission Date: 20141002
  Serious: No
  Sender: FDA-Public Use
  Company Number: US-ABBVIE-13P-163-1056581-00

PATIENT
  Age: 34 Year
  Sex: Female

DRUGS (3)
  1. HUMIRA [Suspect]
     Indication: CROHN^S DISEASE
     Route: 058
     Dates: start: 20121219
  2. KARIVA [Concomitant]
     Indication: CONTRACEPTION
  3. ALBUTEROL [Concomitant]
     Indication: ASTHMA
     Route: 055

REACTIONS (1)
  - Tooth abscess [Recovered/Resolved]
